FAERS Safety Report 17310489 (Version 1)
Quarter: 2020Q1

REPORT INFORMATION
  Report Type: Spontaneous
  Country: AU (occurrence: AU)
  Receive Date: 20200123
  Receipt Date: 20200123
  Transmission Date: 20200409
  Serious: Yes (Life-Threatening, Other)
  Sender: FDA-Public Use
  Company Number: AU-GE HEALTHCARE LIFE SCIENCES-2020CSU000347

PATIENT

DRUGS (6)
  1. OMNIPAQUE [Suspect]
     Active Substance: IOHEXOL
     Indication: SYNCOPE
  2. OMNIPAQUE [Suspect]
     Active Substance: IOHEXOL
     Indication: NECK PAIN
  3. OMNIPAQUE [Suspect]
     Active Substance: IOHEXOL
     Indication: HEADACHE
  4. OMNIPAQUE [Suspect]
     Active Substance: IOHEXOL
     Indication: COMPUTERISED TOMOGRAM SPINE
     Dosage: 100 ML INFUSION, ONCE
     Route: 042
     Dates: start: 20200117, end: 20200117
  5. OMNIPAQUE [Suspect]
     Active Substance: IOHEXOL
     Indication: ANGIOGRAM
  6. OMNIPAQUE [Suspect]
     Active Substance: IOHEXOL
     Indication: DEAFNESS

REACTIONS (5)
  - Lip swelling [Recovered/Resolved]
  - Dizziness [Recovered/Resolved]
  - Cough [Recovered/Resolved]
  - Dyspnoea [Recovered/Resolved]
  - Feeling abnormal [Recovered/Resolved]

NARRATIVE: CASE EVENT DATE: 20200117
